FAERS Safety Report 7212487-X (Version None)
Quarter: 2011Q1

REPORT INFORMATION
  Report Type: 
  Country: None (occurrence: None)
  Receive Date: 20110106
  Receipt Date: 20100824
  Transmission Date: 20110831
  Serious: Yes (Other)
  Sender: FDA-Public Use
  Company Number: US-BAYER-201022303NA

PATIENT
  Sex: Female
  Weight: 85.455 kg

DRUGS (1)
  1. MIRENA [Suspect]
     Indication: CONTRACEPTION
     Dosage: FREQUENCY: CONTINUOUS
     Route: 015
     Dates: start: 20080801, end: 20100721

REACTIONS (4)
  - COITAL BLEEDING [None]
  - ECTOPIC PREGNANCY WITH INTRAUTERINE DEVICE [None]
  - DEVICE DISLOCATION [None]
  - DEVICE BREAKAGE [None]
